FAERS Safety Report 7429028-4 (Version None)
Quarter: 2011Q2

REPORT INFORMATION
  Report Type: 
  Country: None (occurrence: None)
  Receive Date: 20110421
  Receipt Date: 20110414
  Transmission Date: 20111010
  Serious: Yes (Hospitalization, Other)
  Sender: FDA-Public Use
  Company Number: US-SHIRE-SPV1-2011-00645

PATIENT
  Age: 11 Year
  Sex: Female

DRUGS (3)
  1. LIALDA [Suspect]
     Dosage: FOUR 1.2G TABLETS/DAY
     Route: 048
     Dates: start: 20110401, end: 20110401
  2. LIALDA [Suspect]
     Dosage: TWO 1.2G TABLETS/DAY
     Route: 048
     Dates: start: 20110401
  3. LIALDA [Suspect]
     Indication: COLITIS ULCERATIVE
     Dosage: TWO 1.2G TABLETS, 1X/DAY:QD
     Route: 048
     Dates: start: 20090101, end: 20110401

REACTIONS (2)
  - CHROMATURIA [None]
  - OVARIAN OPERATION [None]
